FAERS Safety Report 12289867 (Version 2)
Quarter: 2016Q2

REPORT INFORMATION
  Report Type: Spontaneous
  Country: DE (occurrence: DE)
  Receive Date: 20160421
  Receipt Date: 20160429
  Transmission Date: 20160815
  Serious: Yes (Hospitalization)
  Sender: FDA-Public Use
  Company Number: DE-PERNIX THERAPEUTICS-2016PT000050

PATIENT

DRUGS (1)
  1. KEIMAX [Suspect]
     Active Substance: CEFTIBUTEN
     Indication: PRODUCT USED FOR UNKNOWN INDICATION
     Dosage: 200 MG, TWICE DAILY
     Route: 048
     Dates: start: 20160212, end: 20160216

REACTIONS (4)
  - Diarrhoea [Unknown]
  - Abdominal pain [Unknown]
  - Gastrointestinal pain [Unknown]
  - Rash [Unknown]

NARRATIVE: CASE EVENT DATE: 20160216
